FAERS Safety Report 20459656 (Version 1)
Quarter: 2022Q1

REPORT INFORMATION
  Report Type: Spontaneous
  Country: IN (occurrence: IN)
  Receive Date: 20220211
  Receipt Date: 20220211
  Transmission Date: 20220423
  Serious: Yes (Other)
  Sender: FDA-Public Use
  Company Number: IN-TOLMAR, INC.-22IN032862

PATIENT
  Age: 32 Year
  Sex: Female

DRUGS (7)
  1. ELIGARD [Suspect]
     Active Substance: LEUPROLIDE ACETATE
     Indication: In vitro fertilisation
     Dosage: 0.5 MILLIGRAM, QD
     Route: 058
  2. ELIGARD [Suspect]
     Active Substance: LEUPROLIDE ACETATE
     Indication: Controlled ovarian stimulation
     Dosage: 0.25 MILLIGRAM
     Route: 058
  3. GONAL-F [Suspect]
     Active Substance: FOLLITROPIN
     Indication: Controlled ovarian stimulation
     Dosage: 250 INTERNATIONAL UNIT, QD
     Route: 058
  4. OVIDREL [Suspect]
     Active Substance: CHORIOGONADOTROPIN ALFA
     Indication: Controlled ovarian stimulation
     Dosage: 250 MICROGRAM
     Route: 058
  5. ESTRADIOL VALERATE [Suspect]
     Active Substance: ESTRADIOL VALERATE
     Indication: Product used for unknown indication
     Dosage: 2 MILLIGRAM, BID
  6. DYDROGESTERONE [Suspect]
     Active Substance: DYDROGESTERONE
     Indication: Product used for unknown indication
     Dosage: 10 MILLIGRAM, BID
     Route: 048
  7. PROGESTERONE [Suspect]
     Active Substance: PROGESTERONE
     Indication: Product used for unknown indication
     Dosage: 100 MILLIGRAM, QD
     Route: 030

REACTIONS (8)
  - Ovarian hyperstimulation syndrome [Unknown]
  - Haemorrhagic ascites [Recovered/Resolved]
  - Pallor [Unknown]
  - Respiratory distress [Unknown]
  - Oedema [Unknown]
  - Transaminases increased [Recovered/Resolved]
  - Pleural effusion [Unknown]
  - Off label use [Unknown]
